FAERS Safety Report 5235707-X (Version None)
Quarter: 2007Q1

REPORT INFORMATION
  Report Type: 
  Country: None (occurrence: None)
  Receive Date: 20061208
  Receipt Date: 20051118
  Transmission Date: 20070707
  Serious: Yes (Other)
  Sender: FDA-Public Use
  Company Number: 2005UW17561

PATIENT
  Age: 64 Year
  Sex: Female
  Weight: 67.585 kg

DRUGS (3)
  1. CRESTOR [Suspect]
     Indication: BLOOD CHOLESTEROL INCREASED
     Dosage: 10 MG PO
     Route: 048
     Dates: start: 20051001
  2. ENALAPRIL MALEATE [Concomitant]
  3. CLONAZEPAM [Concomitant]

REACTIONS (3)
  - DIARRHOEA [None]
  - PAIN IN EXTREMITY [None]
  - TINNITUS [None]
